FAERS Safety Report 25256920 (Version 2)
Quarter: 2025Q2

REPORT INFORMATION
  Report Type: Report from Study
  Country: US (occurrence: US)
  Receive Date: 20250430
  Receipt Date: 20250610
  Transmission Date: 20250717
  Serious: No
  Sender: LUNDBECK
  Company Number: US-LUNDBECK-DKLU4013744

PATIENT
  Age: 75 Year
  Sex: Female

DRUGS (2)
  1. VYEPTI [Suspect]
     Active Substance: EPTINEZUMAB-JJMR
     Indication: Migraine
     Dosage: 100 MILLIGRAM
     Route: 041
     Dates: start: 20250408
  2. VYEPTI [Suspect]
     Active Substance: EPTINEZUMAB-JJMR
     Indication: Migraine with aura

REACTIONS (4)
  - Headache [Recovered/Resolved]
  - Pain in jaw [Recovered/Resolved]
  - Brain fog [Unknown]
  - Rash macular [Unknown]

NARRATIVE: CASE EVENT DATE: 20250408
